FAERS Safety Report 15763898 (Version 4)
Quarter: 2019Q4

REPORT INFORMATION
  Report Type: Spontaneous
  Country: GB (occurrence: GB)
  Receive Date: 20181227
  Receipt Date: 20191001
  Transmission Date: 20200122
  Serious: Yes (Life-Threatening, Hospitalization, Other)
  Sender: FDA-Public Use
  Company Number: GB-AUROBINDO-AUR-APL-2018-062573

PATIENT
  Age: 50 Year
  Sex: Female

DRUGS (2)
  1. DEPO-MEDRONE [Suspect]
     Active Substance: METHYLPREDNISOLONE
     Indication: BURSITIS
     Dosage: 0.5MG IN 40ML, SINGLE
     Route: 065
     Dates: start: 20180511
  2. BUPIVACAINE HYDROCHLORIDE SOLUTION FOR INJECTION [Suspect]
     Active Substance: BUPIVACAINE HYDROCHLORIDE
     Indication: BURSITIS
     Dosage: 20 MILLILITER, TOTAL, SINGLE (ADMINISTERED ONCE)
     Route: 065
     Dates: start: 20180511

REACTIONS (26)
  - Feeling abnormal [Unknown]
  - Paraesthesia [Unknown]
  - Eye irritation [Not Recovered/Not Resolved]
  - Cataract [Not Recovered/Not Resolved]
  - Swelling face [Recovered/Resolved]
  - Vomiting [Unknown]
  - Spondylitis [Unknown]
  - Depression [Unknown]
  - Abnormal behaviour [Unknown]
  - Eye pain [Not Recovered/Not Resolved]
  - Dry skin [Not Recovered/Not Resolved]
  - Glaucoma [Unknown]
  - Suicidal ideation [Unknown]
  - Herpes virus infection [Unknown]
  - Flushing [Recovered/Resolved]
  - Hair injury [Not Recovered/Not Resolved]
  - Dry mouth [Unknown]
  - Decreased appetite [Unknown]
  - Panic attack [Not Recovered/Not Resolved]
  - Dry eye [Unknown]
  - Weight decreased [Unknown]
  - Bedridden [Recovered/Resolved]
  - Blindness [Not Recovered/Not Resolved]
  - Joint noise [Unknown]
  - Malaise [Not Recovered/Not Resolved]
  - Dysgeusia [Unknown]

NARRATIVE: CASE EVENT DATE: 2018
